FAERS Safety Report 4299945-5 (Version None)
Quarter: 2004Q1

REPORT INFORMATION
  Report Type: 
  Country: None (occurrence: None)
  Receive Date: 20040220
  Receipt Date: 20030917
  Transmission Date: 20041129
  Serious: Yes (Other)
  Sender: FDA-Public Use
  Company Number: PHFR2003GB03632

PATIENT
  Age: 29 Year
  Sex: Female

DRUGS (8)
  1. VALPROATE SODIUM [Suspect]
     Dosage: 500 MG, BID
  2. VENLAFAXINE HCL [Suspect]
     Dosage: 150 MG, QD
  3. DESMOPRESSIN ACETATE [Concomitant]
  4. METFORMIN HCL [Concomitant]
     Dosage: 500 MG, TID
  5. GLICLAZIDE [Concomitant]
     Dosage: 80 MG, BID
  6. METHYLCELLULOSE [Concomitant]
  7. CLOZARIL [Suspect]
     Indication: SCHIZOPHRENIA
     Dosage: 200MG/DAY
     Route: 048
  8. CLOZARIL [Suspect]
     Dosage: 275 MG/DAY
     Route: 048
     Dates: start: 20000825

REACTIONS (5)
  - DIABETES MELLITUS [None]
  - ELECTROCARDIOGRAM QT CORRECTED INTERVAL PROLONGED [None]
  - HYPERGLYCAEMIA [None]
  - PAIN [None]
  - PHARYNGOLARYNGEAL PAIN [None]
